FAERS Safety Report 8817300 (Version 1)
Quarter: 2012Q4

REPORT INFORMATION
  Report Type: 
  Country: AU (occurrence: AU)
  Receive Date: 20121004
  Receipt Date: 20121004
  Transmission Date: 20130627
  Serious: Yes (Hospitalization)
  Sender: FDA-Public Use
  Company Number: AU-MYLANLABS-2012S1019898

PATIENT
  Age: 82 Year
  Sex: Female

DRUGS (2)
  1. HEPARIN [Suspect]
     Route: 065
  2. WARFARIN [Suspect]
     Route: 065

REACTIONS (1)
  - Vascular pseudoaneurysm [Recovering/Resolving]
